FAERS Safety Report 6903484-X (Version None)
Quarter: 2010Q3

REPORT INFORMATION
  Report Type: 
  Country: None (occurrence: None)
  Receive Date: 20100803
  Receipt Date: 20081009
  Transmission Date: 20110219
  Serious: No
  Sender: FDA-Public Use
  Company Number: US-PFIZER INC-2008085341

PATIENT
  Sex: Female
  Weight: 79.38 kg

DRUGS (5)
  1. LYRICA [Suspect]
     Indication: NEUROPATHY PERIPHERAL
     Route: 048
     Dates: start: 20081002
  2. LYRICA [Suspect]
     Indication: FIBROMYALGIA
  3. PERCOCET [Suspect]
     Indication: PAIN
     Dates: start: 20081001
  4. INFLUENZA VACCINE [Suspect]
     Indication: INFLUENZA
     Dates: start: 20081004
  5. KLONOPIN [Concomitant]

REACTIONS (2)
  - DRUG INEFFECTIVE [None]
  - DYSPNOEA [None]
